FAERS Safety Report 6010298-4 (Version None)
Quarter: 2008Q4

REPORT INFORMATION
  Report Type: 
  Country: None (occurrence: None)
  Receive Date: 20081218
  Receipt Date: 20080509
  Transmission Date: 20090506
  Serious: No
  Sender: FDA-Public Use
  Company Number: A0727271A

PATIENT
  Age: 62 Year
  Sex: Female

DRUGS (7)
  1. FLUTICASONE PROPIONATE [Suspect]
     Dosage: 4SPR PER DAY
     Route: 045
     Dates: start: 20070501
  2. FLOVENT [Concomitant]
  3. SEREVENT [Concomitant]
  4. HUMULIN N [Concomitant]
  5. BLOOD PRESSURE MEDICATION [Concomitant]
  6. ANTI-CHOLESTEROL MEDICATION [Concomitant]
  7. HUMULIN R [Concomitant]

REACTIONS (5)
  - DRUG INEFFECTIVE [None]
  - EPISTAXIS [None]
  - HYPOACUSIS [None]
  - INFLUENZA [None]
  - MIDDLE EAR EFFUSION [None]
